FAERS Safety Report 19108148 (Version 2)
Quarter: 2021Q2

REPORT INFORMATION
  Report Type: Spontaneous
  Country: JP (occurrence: JP)
  Receive Date: 20210408
  Receipt Date: 20210409
  Transmission Date: 20210717
  Serious: Yes (Hospitalization)
  Sender: FDA-Public Use
  Company Number: JP-EISAI MEDICAL RESEARCH-EC-2021-090666

PATIENT
  Age: 59 Year
  Sex: Male

DRUGS (5)
  1. PERAMPANEL [Suspect]
     Active Substance: PERAMPANEL
     Indication: EPILEPSY
     Route: 048
  2. PERAMPANEL [Suspect]
     Active Substance: PERAMPANEL
     Dosage: 8 MG OR MORE (FREQUENCY UNKNOWN)
     Route: 048
  3. LACOSAMIDE. [Concomitant]
     Active Substance: LACOSAMIDE
     Indication: EPILEPSY
     Route: 065
  4. PERAMPANEL [Suspect]
     Active Substance: PERAMPANEL
     Route: 048
  5. LACOSAMIDE. [Concomitant]
     Active Substance: LACOSAMIDE
     Route: 065

REACTIONS (4)
  - Persecutory delusion [Recovering/Resolving]
  - Aggression [Recovering/Resolving]
  - Psychomotor hyperactivity [Recovering/Resolving]
  - Hallucination, visual [Recovering/Resolving]
